FAERS Safety Report 22683325 (Version 7)
Quarter: 2023Q4

REPORT INFORMATION
  Report Type: Report from Study
  Country: US (occurrence: US)
  Receive Date: 20230707
  Receipt Date: 20231103
  Transmission Date: 20240110
  Serious: Yes (Life-Threatening, Hospitalization)
  Sender: FDA-Public Use
  Company Number: US-REGENERON PHARMACEUTICALS, INC.-2023-084336

PATIENT
  Age: 82 Year
  Sex: Male

DRUGS (33)
  1. INVESTIGATIONAL PRODUCT [Suspect]
     Active Substance: INVESTIGATIONAL PRODUCT
     Indication: Prostate cancer metastatic
     Dosage: 100 MG, WEEKLY
     Route: 042
     Dates: start: 20230619, end: 20230619
  2. INVESTIGATIONAL PRODUCT [Suspect]
     Active Substance: INVESTIGATIONAL PRODUCT
     Dosage: 100 MG, WEEKLY
     Route: 042
     Dates: start: 20230703, end: 20230703
  3. CEMIPLIMAB [Suspect]
     Active Substance: CEMIPLIMAB
     Indication: Prostate cancer metastatic
     Dosage: 350 MG, Q3W
     Route: 042
     Dates: start: 20230619, end: 20230619
  4. FLONASE ALLERGY RELIEF [Concomitant]
     Active Substance: FLUTICASONE PROPIONATE
     Indication: Rhinitis allergic
     Dosage: 50 UG, QD
     Route: 045
     Dates: start: 20230213
  5. FLONASE ALLERGY RELIEF [Concomitant]
     Active Substance: FLUTICASONE PROPIONATE
     Indication: Sinusitis
  6. FUROSEMIDE [Concomitant]
     Active Substance: FUROSEMIDE
     Indication: Oedema peripheral
     Dosage: 20 MG, QD
     Route: 048
     Dates: start: 20230201
  7. NEURONTIN [Concomitant]
     Active Substance: GABAPENTIN
     Indication: Back pain
     Dosage: 300 MG, BID
     Route: 048
     Dates: start: 20220727
  8. LISINOPRIL [Concomitant]
     Active Substance: LISINOPRIL
     Indication: Hypertension
     Dosage: 5 MG, QD
     Route: 048
     Dates: start: 20230223
  9. MAGNESIUM [Concomitant]
     Active Substance: MAGNESIUM
     Indication: Supplementation therapy
     Dosage: 250 MG, QD
     Route: 048
     Dates: start: 20190110
  10. DITROPAN [Concomitant]
     Active Substance: OXYBUTYNIN CHLORIDE
     Indication: Hypertonic bladder
     Dosage: 5 MG, QD
     Route: 048
     Dates: start: 20190326
  11. POTASSIUM CHLORIDE [Concomitant]
     Active Substance: POTASSIUM CHLORIDE
     Indication: Supplementation therapy
     Dosage: 120 MEQ, QD
     Route: 048
     Dates: start: 20170427, end: 20230721
  12. ORGOVYX [Concomitant]
     Active Substance: RELUGOLIX
     Indication: Prophylaxis
     Dosage: 120 MG, QD
     Route: 048
     Dates: start: 20130214
  13. TRIAMCINOLONE [Concomitant]
     Active Substance: TRIAMCINOLONE
     Indication: Sinusitis
     Dosage: 1 APPLICATION, BID
     Route: 061
     Dates: start: 20210114
  14. TRIAMCINOLONE [Concomitant]
     Active Substance: TRIAMCINOLONE
     Indication: Rhinitis allergic
  15. EFFEXOR [Concomitant]
     Active Substance: VENLAFAXINE HYDROCHLORIDE
     Indication: Hot flush
     Dosage: 1 TABLET , QD
     Route: 048
     Dates: start: 20191028
  16. CEFEPIME [Concomitant]
     Active Substance: CEFEPIME HYDROCHLORIDE
     Indication: Cytokine release syndrome
     Dosage: 2 G, Q8H
     Route: 042
     Dates: start: 20230628
  17. GUAIFENESIN [Concomitant]
     Active Substance: GUAIFENESIN
     Indication: Cytokine release syndrome
     Dosage: 200 MG, Q4H
     Route: 048
     Dates: start: 20230626, end: 20230627
  18. TOCILIZUMAB [Concomitant]
     Active Substance: TOCILIZUMAB
     Indication: Immune effector cell-associated neurotoxicity syndrome
     Dosage: 680 MG, Q8H
     Route: 042
     Dates: start: 20230705
  19. DECADRON [Concomitant]
     Active Substance: DEXAMETHASONE
     Indication: Cytokine release syndrome
     Dosage: 10 MG, QD
     Route: 042
     Dates: start: 20230702, end: 20230702
  20. DECADRON [Concomitant]
     Active Substance: DEXAMETHASONE
     Indication: Immune effector cell-associated neurotoxicity syndrome
     Dosage: 20 MG, QD
     Route: 042
     Dates: start: 20230705, end: 20230705
  21. KEPPRA [Concomitant]
     Active Substance: LEVETIRACETAM
     Indication: Immune effector cell-associated neurotoxicity syndrome
     Dosage: 1500 MG, QD
     Route: 042
     Dates: start: 20230705, end: 20230705
  22. KEPPRA [Concomitant]
     Active Substance: LEVETIRACETAM
     Dosage: 760 MG, Q12H
     Route: 042
     Dates: start: 20230705
  23. METHYLPREDNISOLONE [Concomitant]
     Active Substance: METHYLPREDNISOLONE
     Indication: Ataxia
     Dosage: 1 G, BID
     Route: 048
     Dates: start: 20230725, end: 20230725
  24. MIRAPEX [Concomitant]
     Active Substance: PRAMIPEXOLE DIHYDROCHLORIDE
     Indication: Restless legs syndrome
     Dosage: 0.375 MG
     Route: 048
     Dates: start: 2023, end: 20230804
  25. APIXABAN [Concomitant]
     Active Substance: APIXABAN
     Indication: Embolism arterial
     Dosage: 5 MG, BID
     Route: 048
     Dates: start: 20230713
  26. ARTIFICIAL TEARS [CARMELLOSE SODIUM] [Concomitant]
     Indication: Conjunctivitis
     Dosage: 0.5 %, QID
     Route: 031
     Dates: start: 20230804
  27. BACTRIM [Concomitant]
     Active Substance: SULFAMETHOXAZOLE\TRIMETHOPRIM
     Indication: Prophylaxis
     Dosage: 800 MG, TIW
     Route: 048
     Dates: start: 20230807
  28. DULCOLAX (BISACODYL) [Concomitant]
     Active Substance: BISACODYL
     Indication: Constipation
     Dosage: 10 MG, QD
     Route: 048
     Dates: start: 20230804
  29. CETIRIZINE [Concomitant]
     Active Substance: CETIRIZINE HYDROCHLORIDE
     Indication: Nasal congestion
     Dosage: 10 MG, QD
     Route: 048
     Dates: start: 20230804
  30. PROTONIX [Concomitant]
     Active Substance: PANTOPRAZOLE SODIUM
     Indication: Gastrooesophageal reflux disease
     Dosage: 40 MG, QD
     Route: 048
     Dates: start: 20230805
  31. MIRALAX [Concomitant]
     Active Substance: POLYETHYLENE GLYCOL 3350
     Indication: Constipation
     Dosage: 17 G, QD
     Route: 048
     Dates: start: 20230713
  32. ROBITUSSIN DM [Concomitant]
     Active Substance: DEXTROMETHORPHAN HYDROBROMIDE\GUAIFENESIN
     Indication: Productive cough
     Dosage: 10 MG, QID
     Route: 048
     Dates: start: 20230804
  33. TRAMADOL [Concomitant]
     Active Substance: TRAMADOL\TRAMADOL HYDROCHLORIDE
     Indication: Back pain
     Dosage: 50 MG, TID
     Route: 048
     Dates: start: 20230714

REACTIONS (5)
  - Immune effector cell-associated neurotoxicity syndrome [Recovered/Resolved]
  - Cytokine release syndrome [Recovered/Resolved]
  - Ataxia [Not Recovered/Not Resolved]
  - Neuropathy peripheral [Recovered/Resolved]
  - Paraproteinaemia [Recovered/Resolved]

NARRATIVE: CASE EVENT DATE: 20230625
